FAERS Safety Report 6379321-1 (Version None)
Quarter: 2009Q3

REPORT INFORMATION
  Report Type: 
  Country: None (occurrence: None)
  Receive Date: 20090928
  Receipt Date: 20090921
  Transmission Date: 20100115
  Serious: Yes (Death, Other)
  Sender: FDA-Public Use
  Company Number: CA-ELI_LILLY_AND_COMPANY-CA200909005063

PATIENT
  Age: 77 Year

DRUGS (1)
  1. XIGRIS [Suspect]
     Indication: BACK PAIN
     Dates: start: 20090901, end: 20090901

REACTIONS (3)
  - DEATH [None]
  - DIALYSIS [None]
  - OFF LABEL USE [None]
